FAERS Safety Report 9013728 (Version 1)
Quarter: 2013Q1

REPORT INFORMATION
  Report Type: Spontaneous
  Country: US (occurrence: None)
  Receive Date: 20130108
  Receipt Date: 20130108
  Transmission Date: 20140127
  Serious: Yes (Other)
  Sender: FDA-Public Use
  Company Number: None

PATIENT
  Sex: Female

DRUGS (1)
  1. JAKAFI 10MG INCYTE [Suspect]
     Dosage: 10MG BID ORAL
     Route: 048
     Dates: start: 20120813

REACTIONS (1)
  - Transfusion [None]
